FAERS Safety Report 5445893-4 (Version None)
Quarter: 2007Q3

REPORT INFORMATION
  Report Type: 
  Country: None (occurrence: None)
  Receive Date: 20070907
  Receipt Date: 20070831
  Transmission Date: 20080115
  Serious: Yes (Other)
  Sender: FDA-Public Use
  Company Number: PHFR2007CY02612

PATIENT
  Age: 24 Year
  Sex: Female

DRUGS (1)
  1. GLEEVEC [Suspect]
     Indication: CHRONIC MYELOID LEUKAEMIA
     Dosage: 400 MG / DAY
     Route: 048
     Dates: start: 20010801

REACTIONS (2)
  - CHROMOSOME ANALYSIS ABNORMAL [None]
  - MYELODYSPLASTIC SYNDROME [None]
